FAERS Safety Report 8446296-0 (Version None)
Quarter: 2012Q2

REPORT INFORMATION
  Report Type: 
  Country: None (occurrence: None)
  Receive Date: 20120618
  Receipt Date: 20120531
  Transmission Date: 20120825
  Serious: No
  Sender: FDA-Public Use
  Company Number: US-BAYER-2012-055108

PATIENT
  Age: 70 Year
  Sex: Female
  Weight: 55.329 kg

DRUGS (8)
  1. ALEVE (CAPLET) [Suspect]
     Dosage: 1 DF, BID
     Route: 048
     Dates: start: 20120301
  2. CALCIUM [Concomitant]
  3. ASPIRIN [Concomitant]
  4. ASCORBIC ACID [Concomitant]
  5. VITAMIN D [Concomitant]
  6. CARVEDILOL [Concomitant]
  7. SYNTHROID [Concomitant]
  8. ALEVE (CAPLET) [Suspect]
     Dosage: 1 DF, TID
     Route: 048
     Dates: start: 20120101, end: 20120530

REACTIONS (1)
  - PRURITUS [None]
